FAERS Safety Report 5270803-2 (Version None)
Quarter: 2007Q1

REPORT INFORMATION
  Report Type: 
  Country: None (occurrence: None)
  Receive Date: 20070319
  Receipt Date: 20070319
  Transmission Date: 20070707
  Serious: No
  Sender: FDA-Public Use
  Company Number: None

PATIENT
  Age: 63 Year
  Sex: Female
  Weight: 73.4827 kg

DRUGS (1)
  1. CEFUROXIME [Suspect]
     Indication: SINUSITIS
     Dosage: 2 TABLETS PER DAY PO
     Route: 048
     Dates: start: 20070312, end: 20070322

REACTIONS (1)
  - PHARMACEUTICAL PRODUCT COMPLAINT [None]
